FAERS Safety Report 9385593 (Version 1)
Quarter: 2013Q3

REPORT INFORMATION
  Report Type: Spontaneous
  Country: US (occurrence: US)
  Receive Date: 20130705
  Receipt Date: 20130705
  Transmission Date: 20140515
  Serious: Yes (Other)
  Sender: FDA-Public Use
  Company Number: US-GLAXOSMITHKLINE-A1030443A

PATIENT
  Age: 40 Year
  Sex: Female
  Weight: 68.2 kg

DRUGS (4)
  1. PAXIL [Suspect]
     Indication: DEPRESSION
     Route: 065
     Dates: start: 1998
  2. EFFEXOR XR [Suspect]
     Indication: DEPRESSION
     Route: 065
     Dates: start: 1998
  3. EFFEXOR [Suspect]
     Indication: DEPRESSION
     Route: 065
     Dates: start: 1998
  4. PROZAC [Suspect]
     Indication: DEPRESSION
     Route: 065
     Dates: start: 1998

REACTIONS (1)
  - Malignant hypertension [Unknown]
